FAERS Safety Report 9346652 (Version 2)
Quarter: 2013Q2

REPORT INFORMATION
  Report Type: Spontaneous
  Country: ES (occurrence: ES)
  Receive Date: 20130613
  Receipt Date: 20130620
  Transmission Date: 20140414
  Serious: Yes (Death, Hospitalization, Other)
  Sender: FDA-Public Use
  Company Number: ES-PFIZER INC-2013170780

PATIENT
  Age: 24 Year
  Sex: Male

DRUGS (5)
  1. METFORMIN HCL [Suspect]
     Dosage: 85 G, UNK (100 TABLETS OF METFORMIN)
  2. OMEPRAZOLE [Suspect]
     Dosage: 0.56 G, UNK
  3. IBUPROFEN [Suspect]
     Dosage: 1.2 G, UNK
  4. PARACETAMOL [Suspect]
     Dosage: 2.6 G,UNK
  5. AMOXICILLIN TRIHYDRATE/CLAVULANIC ACID [Concomitant]
     Dosage: 28/1.75 G, UNK

REACTIONS (7)
  - Poisoning deliberate [Fatal]
  - Heart injury [Fatal]
  - Rhabdomyolysis [Unknown]
  - Lactic acidosis [Recovering/Resolving]
  - Hypothermia [Unknown]
  - Renal failure [Not Recovered/Not Resolved]
  - Hypoglycaemia [Unknown]
